FAERS Safety Report 7602472-8 (Version None)
Quarter: 2011Q3

REPORT INFORMATION
  Report Type: 
  Country: None (occurrence: None)
  Receive Date: 20110712
  Receipt Date: 20110630
  Transmission Date: 20111222
  Serious: No
  Sender: FDA-Public Use
  Company Number: US-BIOGENIDEC-2011BI024384

PATIENT
  Age: 60 Year
  Sex: Female

DRUGS (3)
  1. AVONEX [Suspect]
     Indication: MULTIPLE SCLEROSIS
     Route: 030
     Dates: start: 20090801
  2. BACLOFEN [Concomitant]
     Indication: GAIT DISTURBANCE
     Route: 048
  3. STEROID INJECTIONS (NOS) [Concomitant]
     Indication: GAIT DISTURBANCE
     Dates: start: 20110623, end: 20110628

REACTIONS (1)
  - GAIT DISTURBANCE [None]
